FAERS Safety Report 24743911 (Version 2)
Quarter: 2024Q4

REPORT INFORMATION
  Report Type: Spontaneous
  Country: US (occurrence: US)
  Receive Date: 20241217
  Receipt Date: 20241230
  Transmission Date: 20250115
  Serious: No
  Sender: PFIZER
  Company Number: US-PFIZER INC-PV202400162792

PATIENT
  Age: 67 Year
  Sex: Female
  Weight: 104.8 kg

DRUGS (5)
  1. IBRANCE [Suspect]
     Active Substance: PALBOCICLIB
     Indication: Invasive lobular breast carcinoma
     Dosage: 125 MG, CYCLIC (PO DAILY FOR 21 DAYS, 7 DAYS OFF THEN REPEAT)
     Route: 048
     Dates: start: 20230526
  2. IBRANCE [Suspect]
     Active Substance: PALBOCICLIB
     Indication: Breast cancer female
  3. IBRANCE [Suspect]
     Active Substance: PALBOCICLIB
     Indication: Breast cancer metastatic
  4. LETROZOLE [Concomitant]
     Active Substance: LETROZOLE
     Indication: Breast cancer metastatic
     Dosage: 2.5 MG, DAILY
  5. XANAX [Concomitant]
     Active Substance: ALPRAZOLAM
     Indication: Anxiety
     Dosage: 0.25 MG, 2X/DAY (PO BID PRN 15 DAYS #30 (NO DRIVING OR HEAVY LIFTING. MAY CAUSE DROWSINESS))
     Route: 048

REACTIONS (7)
  - Hot flush [Unknown]
  - Basophil count increased [Unknown]
  - Blood calcium increased [Unknown]
  - Blood glucose increased [Unknown]
  - Blood parathyroid hormone increased [Unknown]
  - Mean cell haemoglobin concentration decreased [Unknown]
  - Mean cell volume increased [Unknown]
